FAERS Safety Report 25963329 (Version 1)
Quarter: 2025Q4

REPORT INFORMATION
  Report Type: Spontaneous
  Country: CN (occurrence: CN)
  Receive Date: 20251027
  Receipt Date: 20251027
  Transmission Date: 20260117
  Serious: Yes (Other)
  Sender: Kenvue
  Company Number: CN-KENVUE-20251008206

PATIENT

DRUGS (8)
  1. CHILDRENS MOTRIN [Suspect]
     Active Substance: IBUPROFEN
     Indication: Pyrexia
     Dosage: 3.5 MILLILITER, AS NEEDED (TOOK ONCE ONLY)
     Route: 048
     Dates: start: 20251009, end: 20251009
  2. CHILDRENS MOTRIN [Suspect]
     Active Substance: IBUPROFEN
     Indication: Pharyngitis
  3. SODIUM CHLORIDE [Suspect]
     Active Substance: SODIUM CHLORIDE
     Indication: Vehicle solution use
     Dosage: 100 MILLILITER, ONCE A DAY
     Route: 041
     Dates: start: 20251009, end: 20251009
  4. AZLOCILLIN SODIUM [Suspect]
     Active Substance: AZLOCILLIN SODIUM
     Indication: Pharyngitis
     Dosage: 1.2 GRAM, ONCE A DAY
     Route: 041
     Dates: start: 20251009, end: 20251009
  5. AZLOCILLIN SODIUM [Suspect]
     Active Substance: AZLOCILLIN SODIUM
     Indication: Pyrexia
  6. DEXTROSE [Suspect]
     Active Substance: DEXTROSE MONOHYDRATE
     Indication: Vehicle solution use
     Dosage: 100 MILLILITER, ONCE A DAY
     Route: 041
     Dates: start: 20251009, end: 20251009
  7. VITAMIN C [Suspect]
     Active Substance: ASCORBIC ACID
     Indication: Pharyngitis
     Dosage: 0.3 GRAM, ONCE A DAY
     Route: 041
     Dates: start: 20251009, end: 20251009
  8. VITAMIN C [Suspect]
     Active Substance: ASCORBIC ACID
     Indication: Pyrexia

REACTIONS (3)
  - Off label use [Unknown]
  - Rash [Recovering/Resolving]
  - Pruritus [Recovering/Resolving]

NARRATIVE: CASE EVENT DATE: 20251009
